FAERS Safety Report 5758785-8 (Version None)
Quarter: 2008Q2

REPORT INFORMATION
  Report Type: 
  Country: None (occurrence: None)
  Receive Date: 20080604
  Receipt Date: 20080523
  Transmission Date: 20081010
  Serious: Yes (Life-Threatening)
  Sender: FDA-Public Use
  Company Number: FR-GILEAD-2008-0016580

PATIENT
  Sex: Female

DRUGS (7)
  1. VIREAD [Suspect]
     Indication: HIV INFECTION
     Route: 048
     Dates: start: 20070827, end: 20070903
  2. KALETRA [Suspect]
     Indication: HIV INFECTION
     Route: 048
     Dates: end: 20070903
  3. EPIVIR [Suspect]
     Indication: HIV INFECTION
     Route: 048
     Dates: end: 20070903
  4. BACTRIM DS [Suspect]
     Indication: OPPORTUNISTIC INFECTION PROPHYLAXIS
     Route: 048
     Dates: start: 20030101, end: 20070903
  5. RAMIPRIL [Suspect]
     Indication: HYPERTENSION
     Dates: start: 20030101, end: 20070903
  6. GLUCOPHAGE [Suspect]
     Indication: TYPE 2 DIABETES MELLITUS
     Route: 048
     Dates: start: 20030101, end: 20070903
  7. ACTOS [Suspect]
     Indication: TYPE 2 DIABETES MELLITUS
     Route: 048
     Dates: start: 20030101, end: 20070903

REACTIONS (4)
  - DIARRHOEA [None]
  - HYPERKALAEMIA [None]
  - LACTIC ACIDOSIS [None]
  - RENAL FAILURE ACUTE [None]
